FAERS Safety Report 10242625 (Version 1)
Quarter: 2014Q2

REPORT INFORMATION
  Report Type: Spontaneous
  Country: US (occurrence: US)
  Receive Date: 20140617
  Receipt Date: 20140617
  Transmission Date: 20141212
  Serious: No
  Sender: FDA-Public Use
  Company Number: US-TEVA-487091USA

PATIENT
  Age: 73 Year
  Sex: Female
  Weight: 87.17 kg

DRUGS (7)
  1. AZILECT [Suspect]
     Indication: PARKINSON^S DISEASE
  2. CARBIDOPA W/LEVODOPA [Concomitant]
     Indication: PARKINSON^S DISEASE
  3. ROPINIROLE [Concomitant]
     Indication: PARKINSON^S DISEASE
     Dosage: TID
  4. TRAMADOL [Concomitant]
     Indication: PAIN
  5. TRIAMTERENE [Concomitant]
  6. CARVEDILOL [Concomitant]
     Indication: HYPERTENSION
  7. METFORMIN [Concomitant]
     Indication: DIABETES MELLITUS

REACTIONS (5)
  - Muscular weakness [Not Recovered/Not Resolved]
  - Dizziness [Not Recovered/Not Resolved]
  - Malaise [Not Recovered/Not Resolved]
  - Dizziness [Unknown]
  - Dyspepsia [Not Recovered/Not Resolved]
